FAERS Safety Report 5812303-4 (Version None)
Quarter: 2008Q3

REPORT INFORMATION
  Report Type: 
  Country: None (occurrence: None)
  Receive Date: 20080716
  Receipt Date: 20080708
  Transmission Date: 20090109
  Serious: Yes (Disabling)
  Sender: FDA-Public Use
  Company Number: US-PFIZER INC-2008056699

PATIENT
  Sex: Female

DRUGS (5)
  1. DETROL LA [Suspect]
     Indication: INCONTINENCE
     Dates: start: 20080101, end: 20080701
  2. LISINOPRIL [Concomitant]
  3. XANAX [Concomitant]
  4. TRAMADOL HCL [Concomitant]
  5. SERTRALINE [Concomitant]

REACTIONS (4)
  - BACK PAIN [None]
  - DISABILITY [None]
  - URINARY INCONTINENCE [None]
  - WEIGHT DECREASED [None]
